FAERS Safety Report 23658650 (Version 1)
Quarter: 2024Q1

REPORT INFORMATION
  Report Type: Spontaneous
  Country: US (occurrence: None)
  Receive Date: 20240321
  Receipt Date: 20240321
  Transmission Date: 20240410
  Serious: Yes (Hospitalization)
  Sender: FDA-Public Use
  Company Number: None

PATIENT
  Age: 42 Year
  Sex: Male
  Weight: 40.4 kg

DRUGS (3)
  1. XELODA [Suspect]
     Active Substance: CAPECITABINE
     Indication: Therapy change
     Dates: end: 20240226
  2. XELODA [Suspect]
     Active Substance: CAPECITABINE
     Indication: Adverse drug reaction
  3. XELODA [Suspect]
     Active Substance: CAPECITABINE
     Indication: Therapy cessation

REACTIONS (16)
  - Small intestinal obstruction [None]
  - Colitis [None]
  - Therapy interrupted [None]
  - Asthenia [None]
  - Diarrhoea [None]
  - Nausea [None]
  - Blood creatine increased [None]
  - Blood sodium decreased [None]
  - Blood urea increased [None]
  - Ileus [None]
  - Enterocolitis [None]
  - Generalised oedema [None]
  - Malnutrition [None]
  - Treatment failure [None]
  - Fall [None]
  - Head injury [None]

NARRATIVE: CASE EVENT DATE: 20240307
